FAERS Safety Report 6157118-5 (Version None)
Quarter: 2009Q2

REPORT INFORMATION
  Report Type: 
  Country: None (occurrence: None)
  Receive Date: 20090413
  Receipt Date: 20090403
  Transmission Date: 20091009
  Serious: Yes (Hospitalization)
  Sender: FDA-Public Use
  Company Number: GXKR2009ES04336

PATIENT
  Age: 53 Year
  Sex: Female

DRUGS (1)
  1. RIMSTAR (ETHAMBUTOL DIHYDROCHLORIDE, ISONIAZID, PYRAZINAMIDE, RIFAMPIC [Suspect]
     Indication: TUBERCULOSIS
     Dosage: ORAL
     Route: 048
     Dates: start: 20081223, end: 20090123

REACTIONS (4)
  - DIARRHOEA [None]
  - DIZZINESS [None]
  - HEPATITIS [None]
  - VOMITING [None]
